FAERS Safety Report 6538046-X (Version None)
Quarter: 2010Q1

REPORT INFORMATION
  Report Type: 
  Country: None (occurrence: None)
  Receive Date: 20100114
  Receipt Date: 20100107
  Transmission Date: 20100710
  Serious: Yes (Death)
  Sender: FDA-Public Use
  Company Number: US-GILEAD-2010-0026276

PATIENT
  Sex: Female
  Weight: 62.652 kg

DRUGS (12)
  1. LETAIRIS [Suspect]
     Indication: PULMONARY ARTERIAL HYPERTENSION
     Route: 048
     Dates: start: 20091205
  2. FLOLAN [Concomitant]
  3. COUMADIN [Concomitant]
  4. LASIX [Concomitant]
  5. ALDACTONE [Concomitant]
  6. DILAUDID [Concomitant]
  7. LEVSIN-SL [Concomitant]
  8. POTASSIUM [Concomitant]
  9. LEXAPRO [Concomitant]
  10. LEVOXYL [Concomitant]
  11. MS CONTIN [Concomitant]
  12. PROTONIX [Concomitant]

REACTIONS (3)
  - PULMONARY HYPERTENSION [None]
  - RENAL FAILURE [None]
  - RIGHT VENTRICULAR FAILURE [None]
